FAERS Safety Report 9301404 (Version 2)
Quarter: 2013Q3

REPORT INFORMATION
  Report Type: Report from Study
  Country: US (occurrence: US)
  Receive Date: 20130521
  Receipt Date: 20130701
  Transmission Date: 20140515
  Serious: Yes (Hospitalization, Other)
  Sender: FDA-Public Use
  Company Number: US-ABBOTT-13P-163-1090103-00

PATIENT
  Age: 37 Year
  Sex: 0
  Weight: 95.79 kg

DRUGS (1)
  1. LUPRON DEPOT [Suspect]
     Indication: ENDOMETRIOSIS
     Dates: start: 201301, end: 201304

REACTIONS (2)
  - Pelvic pain [Recovered/Resolved]
  - Endometriosis [Recovered/Resolved]
